FAERS Safety Report 12598473 (Version 2)
Quarter: 2016Q3

REPORT INFORMATION
  Report Type: Report from Study
  Country: US (occurrence: US)
  Receive Date: 20160727
  Receipt Date: 20160822
  Transmission Date: 20161109
  Serious: Yes (Other)
  Sender: FDA-Public Use
  Company Number: US-GILEAD-2016-0225303

PATIENT
  Age: 65 Year
  Sex: Female
  Weight: 113.38 kg

DRUGS (4)
  1. VITAMIN B12 [Concomitant]
     Active Substance: CYANOCOBALAMIN
  2. AMBRISENTAN [Suspect]
     Active Substance: AMBRISENTAN
     Indication: PULMONARY HYPERTENSION
     Dosage: 10 MG, QD
     Route: 065
     Dates: start: 20160405
  3. PREDNISONE. [Concomitant]
     Active Substance: PREDNISONE
  4. CEFUROXIME. [Concomitant]
     Active Substance: CEFUROXIME

REACTIONS (2)
  - Lower respiratory tract congestion [Unknown]
  - Abdominal pain upper [Unknown]
